FAERS Safety Report 7526699-9 (Version None)
Quarter: 2011Q2

REPORT INFORMATION
  Report Type: 
  Country: None (occurrence: None)
  Receive Date: 20110606
  Receipt Date: 20110525
  Transmission Date: 20111010
  Serious: Yes (Other)
  Sender: FDA-Public Use
  Company Number: US-ELI_LILLY_AND_COMPANY-US201105007961

PATIENT
  Sex: Male

DRUGS (6)
  1. LISINOPRIL [Concomitant]
     Dosage: UNK
  2. HUMULIN 70/30 [Suspect]
     Indication: DIABETES MELLITUS
     Dosage: 32 U, EACH MORNING
     Dates: start: 20070101
  3. HUMULIN 70/30 [Suspect]
     Dosage: 32 U, EACH MORNING
     Dates: start: 20070101
  4. HUMULIN 70/30 [Suspect]
     Dosage: 24 U, EACH EVENING
     Dates: start: 20070101
  5. PRAVASTATIN [Concomitant]
     Dosage: UNK
  6. HUMULIN 70/30 [Suspect]
     Dosage: 24 U, EACH EVENING
     Dates: start: 20070101

REACTIONS (11)
  - BLOOD GLUCOSE INCREASED [None]
  - ENURESIS [None]
  - MEMORY IMPAIRMENT [None]
  - LOSS OF CONSCIOUSNESS [None]
  - BLOOD GLUCOSE DECREASED [None]
  - FEELING ABNORMAL [None]
  - NASOPHARYNGITIS [None]
  - FALL [None]
  - TICK-BORNE FEVER [None]
  - DRUG INEFFECTIVE [None]
  - RELAPSING FEVER [None]
